FAERS Safety Report 9081799 (Version 2)
Quarter: 2013Q1

REPORT INFORMATION
  Report Type: Spontaneous
  Country: US (occurrence: US)
  Receive Date: 20130218
  Receipt Date: 20130313
  Transmission Date: 20140127
  Serious: No
  Sender: FDA-Public Use
  Company Number: US-PFIZER INC-2013059126

PATIENT
  Age: 65 Year
  Sex: Male

DRUGS (6)
  1. INLYTA [Suspect]
     Indication: RENAL CELL CARCINOMA
     Dosage: 3 MG, 2X/DAY
     Route: 048
     Dates: start: 20120817
  2. ALLOPURINOL [Concomitant]
     Dosage: UNK
  3. OXYCODONE [Concomitant]
     Indication: METASTASES TO BONE
     Dosage: 15 MG, 2X/DAY, AS NEEDED
  4. OXYCODONE [Concomitant]
     Indication: PAIN
     Dosage: 5 MG, EVERY 4 HRS, AS NEEDED
  5. COLCHICINE [Concomitant]
     Indication: GOUT
     Dosage: 0.6 MG, DAILY AS NEEDED
  6. LEVOTHYROXINE [Concomitant]
     Indication: HYPOTHYROIDISM
     Dosage: 50 UG, 1X/DAY

REACTIONS (8)
  - Arthralgia [Unknown]
  - Gout [Not Recovered/Not Resolved]
  - Oral pain [Recovered/Resolved]
  - Dry mouth [Unknown]
  - Muscular weakness [Unknown]
  - Asthenia [Recovering/Resolving]
  - Rash [Recovered/Resolved]
  - Decreased appetite [Recovering/Resolving]
